FAERS Safety Report 7968369-9 (Version None)
Quarter: 2011Q4

REPORT INFORMATION
  Report Type: 
  Country: None (occurrence: None)
  Receive Date: 20111207
  Receipt Date: 20111128
  Transmission Date: 20120403
  Serious: Yes (Hospitalization, Other)
  Sender: FDA-Public Use
  Company Number: 2011MA017086

PATIENT
  Age: 53 Year
  Sex: Male

DRUGS (10)
  1. OMEPRAZOLE [Concomitant]
  2. ATORVASTATIN [Suspect]
     Indication: DIABETES MELLITUS
     Dosage: 40 MG;QD;PO
     Route: 048
  3. NAPROXEN [Concomitant]
  4. NOVOLOG MIX 70/30 [Concomitant]
  5. RAMIPRIL [Concomitant]
  6. ASPIRIN [Concomitant]
  7. ATENOLOL [Concomitant]
  8. QUININE [Concomitant]
  9. METFORMIN HYDROCHLORIDE [Suspect]
     Indication: DIABETES MELLITUS
     Dosage: 1 G;BID;PO
     Route: 048
     Dates: end: 20110915
  10. AMLODIPINE [Concomitant]

REACTIONS (2)
  - RHABDOMYOLYSIS [None]
  - RENAL FAILURE ACUTE [None]
